FAERS Safety Report 9115283 (Version 2)
Quarter: 2013Q1

REPORT INFORMATION
  Report Type: Report from Study
  Country: AU (occurrence: AU)
  Receive Date: 20130225
  Receipt Date: 20130313
  Transmission Date: 20140127
  Serious: Yes (Hospitalization)
  Sender: FDA-Public Use
  Company Number: PHHY2013AU017723

PATIENT
  Sex: Male

DRUGS (1)
  1. CLOZARIL [Suspect]
     Dosage: 450 MG, UNK
     Dates: start: 19950123

REACTIONS (2)
  - Fall [Unknown]
  - Abnormal behaviour [Unknown]
